FAERS Safety Report 6900843-6 (Version None)
Quarter: 2010Q3

REPORT INFORMATION
  Report Type: 
  Country: None (occurrence: None)
  Receive Date: 20100803
  Receipt Date: 20100723
  Transmission Date: 20110219
  Serious: Yes (Hospitalization)
  Sender: FDA-Public Use
  Company Number: A0775497A

PATIENT
  Age: 50 Year

DRUGS (1)
  1. AVANDIA [Suspect]
     Route: 048
     Dates: start: 20041019, end: 20071201

REACTIONS (1)
  - MYOCARDIAL INFARCTION [None]
